FAERS Safety Report 4685786-3 (Version None)
Quarter: 2005Q2

REPORT INFORMATION
  Report Type: 
  Country: None (occurrence: None)
  Receive Date: 20050607
  Receipt Date: 20050607
  Transmission Date: 20051028
  Serious: No
  Sender: FDA-Public Use
  Company Number: None

PATIENT
  Age: 64 Year
  Sex: Female
  Weight: 56.246 kg

DRUGS (2)
  1. FLONASE [Suspect]
     Indication: NASAL DISORDER
     Route: 045
  2. FLONASE [Suspect]
     Indication: SINUS DISORDER
     Route: 045

REACTIONS (3)
  - ACCIDENTAL EXPOSURE [None]
  - CONJUNCTIVITIS [None]
  - DRUG ADMINISTRATION ERROR [None]
